FAERS Safety Report 22218056 (Version 1)
Quarter: 2023Q2

REPORT INFORMATION
  Report Type: Spontaneous
  Country: PH (occurrence: PH)
  Receive Date: 20230417
  Receipt Date: 20230417
  Transmission Date: 20230721
  Serious: Yes (Hospitalization)
  Sender: FDA-Public Use
  Company Number: PH-MYLANLABS-2023M1039960

PATIENT
  Age: 32 Year
  Sex: Female

DRUGS (2)
  1. ZOLOFT [Suspect]
     Active Substance: SERTRALINE HYDROCHLORIDE
     Indication: Depression
     Dosage: 50 MILLIGRAM, HALF TABLET ONCE A DAY ON FULL STOMACH FOR THE FIRST 4 DAYS
     Route: 048
     Dates: start: 20220920, end: 20221004
  2. RIVOTRIL [Concomitant]
     Active Substance: CLONAZEPAM
     Indication: Anxiety
     Dosage: 2 MILLIGRAM, QD (1 TABLET ONCE A DAY)
     Route: 048
     Dates: start: 20220920

REACTIONS (3)
  - Pruritus [Unknown]
  - Urticaria [Unknown]
  - Basophil count increased [Unknown]

NARRATIVE: CASE EVENT DATE: 20221005
